FAERS Safety Report 9305863 (Version 1)
Quarter: 2013Q2

REPORT INFORMATION
  Report Type: Spontaneous
  Country: US (occurrence: None)
  Receive Date: 20130522
  Receipt Date: 20130522
  Transmission Date: 20140414
  Serious: Yes (Other)
  Sender: FDA-Public Use
  Company Number: None

PATIENT
  Age: 39 Year
  Sex: Female
  Weight: 74.84 kg

DRUGS (2)
  1. EFFEXOR [Suspect]
     Route: 048
     Dates: start: 20030101, end: 20030701
  2. IMITREX [Suspect]
     Dosage: 1 CARTRIDGE PRN NASAL
     Route: 045

REACTIONS (5)
  - Mood swings [None]
  - Agitation [None]
  - Emotional disorder [None]
  - Drug interaction [None]
  - Influenza like illness [None]
